FAERS Safety Report 4616948-9 (Version None)
Quarter: 2005Q2

REPORT INFORMATION
  Report Type: 
  Country: None (occurrence: None)
  Receive Date: 20050311
  Receipt Date: 20050110
  Transmission Date: 20051028
  Serious: No
  Sender: FDA-Public Use
  Company Number: 2005-BP-00455BP

PATIENT

DRUGS (1)
  1. SPIRIVA [Suspect]
     Dosage: 18 MCG (18 MCG)

REACTIONS (1)
  - HEART RATE INCREASED [None]
